FAERS Safety Report 15089380 (Version 1)
Quarter: 2018Q2

REPORT INFORMATION
  Report Type: Spontaneous
  Country: US (occurrence: US)
  Receive Date: 20180629
  Receipt Date: 20180629
  Transmission Date: 20180711
  Serious: No
  Sender: FDA-Public Use
  Company Number: US-BAYER-2018-122901

PATIENT
  Sex: Female

DRUGS (4)
  1. CLARITIN-D 24 HOUR [Suspect]
     Active Substance: LORATADINE\PSEUDOEPHEDRINE SULFATE
     Indication: HYPERSENSITIVITY
     Dosage: 1 DF, UNK
     Route: 048
  2. BENADRYL [Concomitant]
     Active Substance: DIPHENHYDRAMINE HYDROCHLORIDE
  3. CLARITIN-D 24 HOUR [Suspect]
     Active Substance: LORATADINE\PSEUDOEPHEDRINE SULFATE
     Indication: NASOPHARYNGITIS
     Dosage: UNK
  4. CLARITIN [Suspect]
     Active Substance: LORATADINE
     Route: 065

REACTIONS (5)
  - Product use issue [Unknown]
  - Drug ineffective [Unknown]
  - Drug effect decreased [Unknown]
  - Therapeutic response unexpected [Unknown]
  - Extra dose administered [Unknown]
